FAERS Safety Report 21364384 (Version 3)
Quarter: 2022Q4

REPORT INFORMATION
  Report Type: Spontaneous
  Country: JP (occurrence: JP)
  Receive Date: 20220922
  Receipt Date: 20221216
  Transmission Date: 20230113
  Serious: Yes (Other)
  Sender: FDA-Public Use
  Company Number: JP-ASTELLAS-2022JP002896

PATIENT
  Age: 72 Year
  Sex: Male

DRUGS (17)
  1. PADCEV [Suspect]
     Active Substance: ENFORTUMAB VEDOTIN-EJFV
     Indication: Metastatic carcinoma of the bladder
     Dosage: ONE DOSE 95 MG (76LG*1.25MG), UNKNOWN FREQ.
     Route: 041
     Dates: start: 20220203, end: 20220217
  2. PADCEV [Suspect]
     Active Substance: ENFORTUMAB VEDOTIN-EJFV
     Dosage: 0.75 MG/KG, ONCE WEEKLY
     Route: 041
     Dates: start: 20220512, end: 20220623
  3. PADCEV [Suspect]
     Active Substance: ENFORTUMAB VEDOTIN-EJFV
     Route: 041
     Dates: start: 20220721, end: 20220825
  4. ATENOLOL [Concomitant]
     Active Substance: ATENOLOL
     Indication: Hypertension
     Route: 048
     Dates: start: 20200107
  5. AMLODIPINE [Concomitant]
     Active Substance: AMLODIPINE BESYLATE
     Indication: Hypertension
     Route: 048
     Dates: start: 20201003, end: 20220609
  6. LOSARTAN POTASSIUM [Concomitant]
     Active Substance: LOSARTAN POTASSIUM
     Indication: Hypertension
     Route: 048
     Dates: start: 20201003
  7. CALONAL [Concomitant]
     Active Substance: ACETAMINOPHEN
     Indication: Back pain
     Route: 048
     Dates: start: 20210108
  8. TRAMADOL [Concomitant]
     Active Substance: TRAMADOL
     Indication: Back pain
     Route: 048
     Dates: start: 20210125
  9. ISOTONIC SODIUM CHLORIDE SOLUTION [Concomitant]
     Active Substance: SODIUM CHLORIDE
     Indication: Medication dilution
     Route: 041
     Dates: start: 20220203, end: 20220217
  10. ISOTONIC SODIUM CHLORIDE SOLUTION [Concomitant]
     Active Substance: SODIUM CHLORIDE
     Route: 041
     Dates: start: 20220512, end: 20220623
  11. ISOTONIC SODIUM CHLORIDE SOLUTION [Concomitant]
     Active Substance: SODIUM CHLORIDE
     Route: 041
     Dates: start: 20220721, end: 20220825
  12. WATER FOR INJECTION [Concomitant]
     Active Substance: WATER
     Indication: Medication dilution
     Dosage: UNK UNK, UNKNOWN FREQ.
     Route: 041
     Dates: start: 20220203, end: 20220217
  13. WATER FOR INJECTION [Concomitant]
     Active Substance: WATER
     Dosage: UNK UNK, ONCE WEEKLY
     Route: 041
     Dates: start: 20220512, end: 20220623
  14. WATER FOR INJECTION [Concomitant]
     Active Substance: WATER
     Dosage: UNK UNK, ONCE WEEKLY
     Route: 041
     Dates: start: 20220721, end: 20220825
  15. OXYCODONE [Concomitant]
     Active Substance: OXYCODONE
     Indication: Product used for unknown indication
     Route: 048
     Dates: start: 20220228, end: 20220307
  16. METHYLCOBALAMIN [Concomitant]
     Active Substance: METHYLCOBALAMIN
     Indication: Neuropathy peripheral
     Dosage: 0.5 MG, THRICE DAILY
     Route: 048
     Dates: start: 20220526
  17. HYDROMORPHONE HYDROCHLORIDE [Concomitant]
     Active Substance: HYDROMORPHONE HYDROCHLORIDE
     Indication: Product used for unknown indication
     Route: 048
     Dates: start: 20220804

REACTIONS (9)
  - Malaise [Not Recovered/Not Resolved]
  - Dysgeusia [Recovering/Resolving]
  - Platelet count decreased [Recovered/Resolved]
  - Taste disorder [Unknown]
  - Anaemia [Recovered/Resolved]
  - Fatigue [Not Recovered/Not Resolved]
  - Diarrhoea [Unknown]
  - Malignant neoplasm progression [Not Recovered/Not Resolved]
  - Weight decreased [Not Recovered/Not Resolved]

NARRATIVE: CASE EVENT DATE: 20220213
